FAERS Safety Report 23228277 (Version 1)
Quarter: 2023Q4

REPORT INFORMATION
  Report Type: Spontaneous
  Country: PL (occurrence: PL)
  Receive Date: 20231125
  Receipt Date: 20231125
  Transmission Date: 20240110
  Serious: Yes (Death, Life-Threatening, Hospitalization, Other)
  Sender: FDA-Public Use
  Company Number: PL-MLMSERVICE-20231108-4647069-1

PATIENT
  Age: 62 Year
  Sex: Male

DRUGS (25)
  1. BENDAMUSTINE [Suspect]
     Active Substance: BENDAMUSTINE
     Indication: Chronic lymphocytic leukaemia
  2. CYCLOPHOSPHAMIDE [Suspect]
     Active Substance: CYCLOPHOSPHAMIDE
     Indication: Disease progression
     Dates: start: 2010
  3. FLUDARABINE [Suspect]
     Active Substance: FLUDARABINE PHOSPHATE
     Indication: Chronic lymphocytic leukaemia
     Dates: start: 2010
  4. DOXORUBICIN [Suspect]
     Active Substance: DOXORUBICIN
     Indication: Chronic lymphocytic leukaemia
     Dates: start: 2016
  5. IBRUTINIB [Suspect]
     Active Substance: IBRUTINIB
     Indication: Disease progression
     Dates: start: 2017
  6. DEXAMETHASONE [Suspect]
     Active Substance: DEXAMETHASONE
     Indication: Disease progression
  7. CHLORAMBUCIL [Suspect]
     Active Substance: CHLORAMBUCIL
     Indication: Disease progression
     Dates: end: 2010
  8. VINCRISTINE [Suspect]
     Active Substance: VINCRISTINE
     Indication: Disease progression
     Dates: start: 2016
  9. RITUXIMAB [Suspect]
     Active Substance: RITUXIMAB
     Indication: Disease progression
     Dates: start: 2017
  10. PREDNISONE [Suspect]
     Active Substance: PREDNISONE
     Indication: Chronic lymphocytic leukaemia
     Dates: start: 2016
  11. IBRUTINIB [Suspect]
     Active Substance: IBRUTINIB
     Indication: Chronic lymphocytic leukaemia
     Dates: start: 2017
  12. RITUXIMAB [Suspect]
     Active Substance: RITUXIMAB
     Indication: Viraemia
  13. RITUXIMAB [Suspect]
     Active Substance: RITUXIMAB
     Indication: Chronic lymphocytic leukaemia
  14. RITUXIMAB [Suspect]
     Active Substance: RITUXIMAB
     Indication: Disease progression
  15. CYCLOPHOSPHAMIDE [Suspect]
     Active Substance: CYCLOPHOSPHAMIDE
     Indication: Chronic lymphocytic leukaemia
     Dates: start: 2010
  16. FLUDARABINE [Suspect]
     Active Substance: FLUDARABINE PHOSPHATE
     Indication: Disease progression
     Dates: start: 2010
  17. CYCLOPHOSPHAMIDE [Suspect]
     Active Substance: CYCLOPHOSPHAMIDE
     Indication: Disease progression
     Dates: start: 2016
  18. CYCLOPHOSPHAMIDE [Suspect]
     Active Substance: CYCLOPHOSPHAMIDE
     Indication: Chronic lymphocytic leukaemia
     Dates: start: 2016
  19. DOXORUBICIN [Suspect]
     Active Substance: DOXORUBICIN
     Indication: Disease progression
     Dates: start: 2016
  20. DEXAMETHASONE [Suspect]
     Active Substance: DEXAMETHASONE
     Indication: Chronic lymphocytic leukaemia
  21. CHLORAMBUCIL [Suspect]
     Active Substance: CHLORAMBUCIL
     Indication: Chronic lymphocytic leukaemia
     Dates: end: 2010
  22. VINCRISTINE [Suspect]
     Active Substance: VINCRISTINE
     Indication: Chronic lymphocytic leukaemia
     Dates: start: 2016
  23. RITUXIMAB [Suspect]
     Active Substance: RITUXIMAB
     Indication: Chronic lymphocytic leukaemia
     Dates: start: 2017
  24. BENDAMUSTINE [Suspect]
     Active Substance: BENDAMUSTINE
     Indication: Disease progression
  25. PREDNISONE [Suspect]
     Active Substance: PREDNISONE
     Indication: Disease progression
     Dates: start: 2016

REACTIONS (3)
  - Natural killer-cell lymphoblastic lymphoma [Fatal]
  - Bone marrow disorder [Fatal]
  - Off label use [Unknown]
